FAERS Safety Report 12248150 (Version 1)
Quarter: 2016Q2

REPORT INFORMATION
  Report Type: Spontaneous
  Country: US (occurrence: US)
  Receive Date: 20160408
  Receipt Date: 20160408
  Transmission Date: 20160815
  Serious: Yes (Disabling, Other)
  Sender: FDA-Public Use
  Company Number: US-HOSPIRA-3240149

PATIENT
  Age: 3 Year
  Sex: Male
  Weight: 12 kg

DRUGS (31)
  1. VANCOCIN [Concomitant]
     Active Substance: VANCOMYCIN HYDROCHLORIDE
     Indication: ANTI-INFECTIVE THERAPY
     Route: 042
     Dates: start: 20160222, end: 20160312
  2. GENTAK [Concomitant]
     Active Substance: GENTAMICIN SULFATE
     Indication: PYREXIA
     Dosage: DAILY
     Route: 042
     Dates: start: 20160227, end: 20160227
  3. VERSED [Concomitant]
     Active Substance: MIDAZOLAM HYDROCHLORIDE
     Indication: LUMBAR PUNCTURE
     Dosage: ONCE
     Route: 042
     Dates: start: 20160301, end: 20160301
  4. ANECTINE [Concomitant]
     Active Substance: SUCCINYLCHOLINE CHLORIDE
     Indication: LUMBAR PUNCTURE
     Dosage: ONCE
     Route: 042
     Dates: start: 20160301, end: 20160301
  5. ATIVAN [Concomitant]
     Active Substance: LORAZEPAM
     Indication: NAUSEA
     Dosage: AS NEEDED
     Route: 042
     Dates: start: 20160220
  6. CYTARABINE. [Suspect]
     Active Substance: CYTARABINE
     Indication: ACUTE MYELOID LEUKAEMIA
     Dates: start: 20160221, end: 20160225
  7. CHOLINE MAGNESIUM TRISALICYLATE. [Concomitant]
     Active Substance: CHOLINE MAGNESIUM TRISALICYLATE
     Indication: PYREXIA
     Route: 048
     Dates: start: 20160311, end: 20160311
  8. TYLENOL [Concomitant]
     Active Substance: ACETAMINOPHEN
     Indication: PYREXIA
     Route: 048
     Dates: start: 20160228, end: 20160312
  9. BENADRYL [Concomitant]
     Active Substance: DIPHENHYDRAMINE HYDROCHLORIDE
     Indication: PREMEDICATION
     Dosage: AS NEEDED
     Route: 042
     Dates: start: 20160223
  10. SODIUM CHLORIDE. [Concomitant]
     Active Substance: SODIUM CHLORIDE
     Indication: ELECTROLYTE SUBSTITUTION THERAPY
     Dosage: 10 ML/KG, SINGLE
     Route: 042
     Dates: start: 20160225
  11. BACTRIM [Concomitant]
     Active Substance: SULFAMETHOXAZOLE\TRIMETHOPRIM
     Indication: ANTIBIOTIC PROPHYLAXIS
     Route: 048
     Dates: start: 20160222, end: 20160317
  12. TYLENOL [Concomitant]
     Active Substance: ACETAMINOPHEN
     Indication: PYREXIA
     Dosage: SINGLE
     Route: 042
     Dates: start: 20160227, end: 20160227
  13. PROVENTIL [Concomitant]
     Active Substance: ALBUTEROL
     Indication: WHEEZING
     Dosage: 2 PUFFS
     Route: 055
     Dates: start: 20160310, end: 20160310
  14. MYLOTARG [Suspect]
     Active Substance: GEMTUZUMAB OZOGAMICIN
     Indication: ACUTE MYELOID LEUKAEMIA
     Dosage: SINGLE
     Route: 042
     Dates: start: 20160227, end: 20160227
  15. OXYCONTIN [Concomitant]
     Active Substance: OXYCODONE HYDROCHLORIDE
     Indication: PAIN
     Dosage: ONCE
     Route: 048
     Dates: start: 20160227, end: 20160312
  16. GENTAK [Concomitant]
     Active Substance: GENTAMICIN SULFATE
     Indication: PYREXIA
     Dosage: DAILY
     Route: 042
     Dates: start: 20160308, end: 20160308
  17. KADIAN [Concomitant]
     Active Substance: MORPHINE SULFATE
     Indication: PAIN
     Dates: start: 20160220
  18. VERSED [Concomitant]
     Active Substance: MIDAZOLAM HYDROCHLORIDE
     Indication: LUMBAR PUNCTURE
     Dosage: ONCE
     Route: 042
     Dates: start: 20160227, end: 20160227
  19. SODIUM CHLORIDE. [Concomitant]
     Active Substance: SODIUM CHLORIDE
     Indication: FLUID REPLACEMENT
     Dosage: 10 ML/KG, SINGLE
     Route: 042
     Dates: start: 20160225
  20. GLUCOSE [Concomitant]
     Active Substance: DEXTROSE
     Indication: PRODUCT USED FOR UNKNOWN INDICATION
     Route: 042
     Dates: start: 20160218, end: 20160313
  21. FLUDARABINE PHOSPHATE. [Suspect]
     Active Substance: FLUDARABINE PHOSPHATE
     Indication: ACUTE MYELOID LEUKAEMIA
     Dates: start: 20160221, end: 20160225
  22. DIPRIVAN [Concomitant]
     Active Substance: PROPOFOL
     Indication: LUMBAR PUNCTURE
     Route: 042
     Dates: start: 20160301, end: 20160301
  23. MAXIPIME [Concomitant]
     Active Substance: CEFEPIME HYDROCHLORIDE
     Indication: ANTI-INFECTIVE THERAPY
     Route: 042
     Dates: start: 20160218
  24. CANCIDAS [Concomitant]
     Active Substance: CASPOFUNGIN ACETATE
     Indication: ANTI-INFECTIVE THERAPY
     Route: 042
     Dates: start: 20160222, end: 20160313
  25. LACTATED RINGERS [Concomitant]
     Active Substance: CALCIUM CHLORIDE\POTASSIUM CHLORIDE\SODIUM CHLORIDE\SODIUM LACTATE
     Indication: ELECTROLYTE SUBSTITUTION THERAPY
     Route: 042
     Dates: start: 20160227, end: 20160311
  26. DIPRIVAN [Concomitant]
     Active Substance: PROPOFOL
     Indication: LUMBAR PUNCTURE
     Route: 042
     Dates: start: 20160227, end: 20160227
  27. GENTAK [Concomitant]
     Active Substance: GENTAMICIN SULFATE
     Indication: PYREXIA
     Dosage: DAILY
     Route: 042
     Dates: start: 20160305, end: 20160305
  28. POTASSIUM CHLORIDE. [Concomitant]
     Active Substance: POTASSIUM CHLORIDE
     Indication: HYPOKALAEMIA
     Dosage: 1 MEQ/KG; SINGLE
     Route: 042
     Dates: start: 20160228, end: 20160228
  29. ZOFRAN [Concomitant]
     Active Substance: ONDANSETRON HYDROCHLORIDE
     Indication: NAUSEA
     Route: 042
     Dates: start: 20160221
  30. ZOFRAN [Concomitant]
     Active Substance: ONDANSETRON HYDROCHLORIDE
     Indication: NAUSEA
     Dosage: ONCE
     Route: 042
     Dates: start: 20160301, end: 20160301
  31. CHLORHEXIDINE [Concomitant]
     Active Substance: CHLORHEXIDINE
     Indication: PRODUCT USED FOR UNKNOWN INDICATION
     Route: 048
     Dates: start: 20160220, end: 20160315

REACTIONS (5)
  - Febrile neutropenia [Unknown]
  - Epistaxis [Not Recovered/Not Resolved]
  - Respiratory distress [Unknown]
  - Sinusitis fungal [Not Recovered/Not Resolved]
  - Condition aggravated [Unknown]

NARRATIVE: CASE EVENT DATE: 20160313
